FAERS Safety Report 9486580 (Version 1)
Quarter: 2013Q3

REPORT INFORMATION
  Report Type: Report from Study
  Country: AR (occurrence: AR)
  Receive Date: 20130829
  Receipt Date: 20130829
  Transmission Date: 20140515
  Serious: Yes (Other)
  Sender: FDA-Public Use
  Company Number: PHHY2013AR094032

PATIENT
  Sex: Female

DRUGS (3)
  1. RASILEZ D [Suspect]
     Dosage: 300/25MG, UNK
     Route: 048
  2. EXFORGE D [Suspect]
     Indication: HYPERTENSION
     Dosage: 160/10/25MG, UNK
     Route: 048
  3. DIOVAN D [Suspect]
     Indication: HYPERTENSION
     Dosage: 1 DF (160/12.5MG) DAILY
     Route: 048

REACTIONS (1)
  - Diabetes mellitus [Not Recovered/Not Resolved]
